FAERS Safety Report 10003966 (Version 2)
Quarter: 2014Q1

REPORT INFORMATION
  Report Type: Spontaneous
  Country: US (occurrence: US)
  Receive Date: 20140312
  Receipt Date: 20140319
  Transmission Date: 20141002
  Serious: Yes (Hospitalization)
  Sender: FDA-Public Use
  Company Number: US-LUNDBECK-DKLU1098077

PATIENT
  Age: 31 Year
  Sex: Female

DRUGS (14)
  1. ONFI [Suspect]
     Indication: PRODUCT USED FOR UNKNOWN INDICATION
     Route: 048
  2. ONFI [Suspect]
     Route: 048
     Dates: start: 20130909, end: 20131010
  3. PROZAC [Suspect]
     Indication: PRODUCT USED FOR UNKNOWN INDICATION
     Dates: end: 20131015
  4. PROZAC [Suspect]
     Dates: start: 20131016
  5. PROZAC [Suspect]
     Dates: start: 20131108
  6. CARBAMAZEPINE [Concomitant]
     Indication: PRODUCT USED FOR UNKNOWN INDICATION
     Dates: end: 20130823
  7. CARBAMAZEPINE [Concomitant]
     Dates: end: 20130823
  8. LEVETIRACETAM [Concomitant]
     Indication: PRODUCT USED FOR UNKNOWN INDICATION
  9. TOPIRAMATE [Concomitant]
     Indication: PRODUCT USED FOR UNKNOWN INDICATION
     Dates: end: 20131013
  10. LAMOTRIGINE [Concomitant]
     Indication: PRODUCT USED FOR UNKNOWN INDICATION
  11. LAMOTRIGINE [Concomitant]
  12. LORAZEPAM [Concomitant]
     Indication: CONVULSION
     Route: 048
  13. MULTIPLE VITAMIN WITH MINERALS [Concomitant]
     Indication: PRODUCT USED FOR UNKNOWN INDICATION
  14. CALCIUM CARBONATE- VITAMIN D [Concomitant]
     Indication: PRODUCT USED FOR UNKNOWN INDICATION

REACTIONS (12)
  - Abnormal behaviour [Unknown]
  - Drug level increased [Unknown]
  - Lethargy [Unknown]
  - Irritability [Unknown]
  - Obsessive-compulsive disorder [Unknown]
  - Dermatillomania [Unknown]
  - Activities of daily living impaired [Unknown]
  - Memory impairment [Unknown]
  - Bradykinesia [Unknown]
  - Muscular weakness [Unknown]
  - Insomnia [Unknown]
  - Drug interaction [Unknown]
